FAERS Safety Report 8853756 (Version 2)
Quarter: 2012Q4

REPORT INFORMATION
  Report Type: 
  Country: US (occurrence: US)
  Receive Date: 20121022
  Receipt Date: 20121114
  Transmission Date: 20130627
  Serious: Yes (Death)
  Sender: FDA-Public Use
  Company Number: US-PFIZER INC-2012258031

PATIENT
  Age: 51 Year
  Sex: Female
  Weight: 61.4 kg

DRUGS (1)
  1. CRIZOTINIB [Suspect]
     Indication: NON-SMALL CELL LUNG CANCER STAGE IV
     Dosage: 250 mg, 2x/day
     Route: 048
     Dates: start: 20110902, end: 20121002

REACTIONS (1)
  - Pulmonary embolism [Fatal]
